FAERS Safety Report 24445517 (Version 2)
Quarter: 2024Q4

REPORT INFORMATION
  Report Type: Spontaneous
  Country: FR (occurrence: FR)
  Receive Date: 20241016
  Receipt Date: 20241017
  Transmission Date: 20250115
  Serious: Yes (Hospitalization)
  Sender: HRA PHARMA
  Company Number: None

PATIENT
  Age: 31 Year
  Sex: Female
  Weight: 56 kg

DRUGS (9)
  1. LYSODREN [Suspect]
     Active Substance: MITOTANE
     Indication: Adrenocortical carcinoma
     Dosage: 10 TABLETS PER DAY
     Route: 048
     Dates: start: 20240307, end: 20240724
  2. LYSODREN [Suspect]
     Active Substance: MITOTANE
     Indication: Adrenocortical carcinoma
     Dosage: 8 TABLETS PER DAY
     Route: 048
     Dates: start: 20240724, end: 20240831
  3. IMOVANE [ZOPICLONE] [Concomitant]
     Indication: Product used for unknown indication
  4. TINZAPARIN SODIUM ((MAMMAL/PIG/GUTTUM MUCOSA)) [Concomitant]
     Indication: Product used for unknown indication
  5. AMLOR [AMLODIPINE (BESILATE)] [Concomitant]
     Indication: Product used for unknown indication
  6. ACUPAN [NEFOPAM (HYDROCHLORIDE)] [Concomitant]
     Indication: Product used for unknown indication
  7. HYDROCORTISONE [Concomitant]
     Active Substance: HYDROCORTISONE
     Indication: Product used for unknown indication
  8. SERESTA [OXAZEPAM] [Concomitant]
     Indication: Product used for unknown indication
  9. LEVOTHYROXINE SODIUM [Concomitant]
     Active Substance: LEVOTHYROXINE SODIUM
     Indication: Product used for unknown indication

REACTIONS (1)
  - Anaemia [Recovering/Resolving]

NARRATIVE: CASE EVENT DATE: 20240824
